FAERS Safety Report 20720566 (Version 1)
Quarter: 2022Q2

REPORT INFORMATION
  Report Type: Other
  Country: US (occurrence: None)
  Receive Date: 20220418
  Receipt Date: 20220418
  Transmission Date: 20220721
  Serious: Yes (Hospitalization)
  Sender: FDA-Public Use
  Company Number: US-ROCHE-2729567

PATIENT
  Sex: Female

DRUGS (1)
  1. OCREVUS [Suspect]
     Active Substance: OCRELIZUMAB
     Indication: Relapsing-remitting multiple sclerosis
     Dosage: ON DAY 1 AND DAY 15 AND LATER 600 MG EVERY 6 MONTHS?DATE OF TREATMENTS: 02/NOV/2019, 01/MAY/2020, 01
     Route: 042
     Dates: start: 20191004

REACTIONS (3)
  - Pneumonia [Unknown]
  - Nasopharyngitis [Recovered/Resolved]
  - Off label use [Unknown]
